FAERS Safety Report 13097131 (Version 1)
Quarter: 2017Q1

REPORT INFORMATION
  Report Type: Spontaneous
  Country: US (occurrence: US)
  Receive Date: 20170107
  Receipt Date: 20170107
  Transmission Date: 20170428
  Serious: Yes (Disabling)
  Sender: FDA-Public Use
  Company Number: None

PATIENT
  Age: 66 Year
  Sex: Female
  Weight: 97.2 kg

DRUGS (11)
  1. SIMVASTATIN. [Concomitant]
     Active Substance: SIMVASTATIN
  2. ASA [Concomitant]
     Active Substance: ASPIRIN
  3. METOPROLOL. [Concomitant]
     Active Substance: METOPROLOL
  4. MULTIVITAMIN [Concomitant]
     Active Substance: VITAMINS
  5. PRINIVIL [Concomitant]
     Active Substance: LISINOPRIL
  6. IMDUR [Concomitant]
     Active Substance: ISOSORBIDE MONONITRATE
  7. ONGLYZA [Suspect]
     Active Substance: SAXAGLIPTIN HYDROCHLORIDE
     Indication: TYPE 2 DIABETES MELLITUS
     Dosage: ?          QUANTITY:1 TABLET(S);?
     Route: 048
     Dates: start: 20160510, end: 20161121
  8. METFORMIN [Concomitant]
     Active Substance: METFORMIN HYDROCHLORIDE
  9. GLYBURIDE. [Concomitant]
     Active Substance: GLYBURIDE
  10. FISH OIL [Concomitant]
     Active Substance: FISH OIL
  11. VITAMIN D [Concomitant]
     Active Substance: CHOLECALCIFEROL

REACTIONS (9)
  - Furuncle [None]
  - Rash [None]
  - Blood glucose increased [None]
  - Pruritus [None]
  - Hypoaesthesia oral [None]
  - Purulence [None]
  - Paraesthesia [None]
  - Chemical burn of skin [None]
  - Papule [None]

NARRATIVE: CASE EVENT DATE: 20161021
